FAERS Safety Report 5280007-5 (Version None)
Quarter: 2007Q1

REPORT INFORMATION
  Report Type: 
  Country: None (occurrence: None)
  Receive Date: 20070329
  Receipt Date: 20070316
  Transmission Date: 20070707
  Serious: Yes (Other)
  Sender: FDA-Public Use
  Company Number: PHEH2007US03212

PATIENT
  Age: 38 Year
  Sex: Female

DRUGS (2)
  1. EXJADE [Suspect]
     Indication: IRON OVERLOAD
     Dates: start: 20060607
  2. DESFERAL [Suspect]

REACTIONS (2)
  - COPPER DEFICIENCY [None]
  - NEUROPATHY [None]
